FAERS Safety Report 9718220 (Version 1)
Quarter: 2013Q4

REPORT INFORMATION
  Report Type: Spontaneous
  Country: US (occurrence: None)
  Receive Date: 20131125
  Receipt Date: 20131125
  Transmission Date: 20140711
  Serious: Yes (Other)
  Sender: FDA-Public Use
  Company Number: 001631748A

PATIENT
  Age: 25 Year
  Sex: Female

DRUGS (4)
  1. PROACTIV PLUS SKIN SMOOTHING EXFOLIATOR [Suspect]
     Indication: ACNE
     Dosage: ONCE DAILY DERMAL
     Dates: start: 20131105, end: 20131107
  2. PROACTIV PLUS PORE TARGETING TREATMENT [Suspect]
     Indication: ACNE
     Dosage: ONCE DAILY DERMAL
     Dates: start: 20131105, end: 20131107
  3. PROACTIV PLUS COMPLEXION PERFECTING HYDRATOR [Suspect]
     Dates: start: 20131105, end: 20131107
  4. DAILY MULTIVITAMINS [Concomitant]

REACTIONS (3)
  - Erythema [None]
  - Swelling [None]
  - Urticaria [None]
